FAERS Safety Report 12413781 (Version 1)
Quarter: 2016Q2

REPORT INFORMATION
  Report Type: Spontaneous
  Country: US (occurrence: US)
  Receive Date: 20160527
  Receipt Date: 20160527
  Transmission Date: 20160815
  Serious: No
  Sender: FDA-Public Use
  Company Number: US-SUPERNUS PHARMACEUTICALS, INC.-2016SUP00091

PATIENT
  Age: 69 Year
  Sex: Female
  Weight: 83.9 kg

DRUGS (13)
  1. TROKENDI XR [Suspect]
     Active Substance: TOPIRAMATE
     Indication: BACK PAIN
     Dosage: 50 MG, ONCE
     Route: 048
     Dates: start: 20160428, end: 20160428
  2. VITAMIN D 5000 [Concomitant]
  3. DILAUDID [Concomitant]
     Active Substance: HYDROMORPHONE HYDROCHLORIDE
     Dosage: 2 MG, UP TO 3X/DAY
  4. ATORVASTATIN [Concomitant]
     Active Substance: ATORVASTATIN
     Dosage: 40 MG, 1X/DAY
  5. TROKENDI XR [Suspect]
     Active Substance: TOPIRAMATE
     Indication: BACK PAIN
     Dosage: 25 MG, ONCE
     Route: 048
     Dates: start: 20160427, end: 20160427
  6. METFORMIN [Concomitant]
     Active Substance: METFORMIN HYDROCHLORIDE
     Dosage: 1000 MG, 2X/DAY
  7. VITAMIN B12 500 [Concomitant]
     Dosage: UNK
  8. LISINOPRIL. [Concomitant]
     Active Substance: LISINOPRIL
     Dosage: 20 MG, 1X/DAY
  9. HCTZ [Concomitant]
     Active Substance: HYDROCHLOROTHIAZIDE
     Dosage: 25 MG, 1X/DAY
  10. ZOFRAN [Concomitant]
     Active Substance: ONDANSETRON HYDROCHLORIDE
     Dosage: UNK, AS NEEDED
  11. DITROPAN [Concomitant]
     Active Substance: OXYBUTYNIN CHLORIDE
     Dosage: 5 MG, 1X/DAY
  12. VITAMIN E 400 [Concomitant]
     Dosage: UNK
  13. VITAMIN B COMPLEX [Concomitant]
     Active Substance: CYANOCOBALAMIN\DEXPANTHENOL\NIACINAMIDE\PYRIDOXINE HYDROCHLORIDE\RIBOFLAVIN 5^-PHOSPHATE SODIUM\THIAMINE HYDROCHLORIDE\VITAMIN B COMPLEX
     Dosage: UNK, 2X/DAY

REACTIONS (5)
  - Disorientation [Recovering/Resolving]
  - Nausea [Recovered/Resolved]
  - Somnolence [Unknown]
  - Tinnitus [Recovering/Resolving]
  - Drug ineffective for unapproved indication [Recovered/Resolved]

NARRATIVE: CASE EVENT DATE: 20160427
